FAERS Safety Report 7943452-2 (Version None)
Quarter: 2011Q4

REPORT INFORMATION
  Report Type: 
  Country: None (occurrence: None)
  Receive Date: 20111128
  Receipt Date: 20111121
  Transmission Date: 20120403
  Serious: Yes (Hospitalization)
  Sender: FDA-Public Use
  Company Number: DE-TEVA-310764GER

PATIENT
  Sex: Female

DRUGS (6)
  1. FLUPIRTINE MALEATE [Suspect]
  2. OXYBUTYNIN [Suspect]
     Dates: end: 20110101
  3. GABAPENTIN [Suspect]
     Dates: end: 20110101
  4. GABAPENTIN [Suspect]
     Dates: start: 20110101
  5. CYMBALTA [Suspect]
     Dosage: 90 MILLIGRAM;
  6. SIMVASTATIN [Suspect]

REACTIONS (2)
  - TOXICITY TO VARIOUS AGENTS [None]
  - MALAISE [None]
